FAERS Safety Report 11645963 (Version 1)
Quarter: 2015Q4

REPORT INFORMATION
  Report Type: Spontaneous
  Country: IT (occurrence: IT)
  Receive Date: 20151020
  Receipt Date: 20151020
  Transmission Date: 20160304
  Serious: Yes (Other)
  Sender: FDA-Public Use
  Company Number: IT-BRISTOL-MYERS SQUIBB COMPANY-BMS-2015-068688

PATIENT
  Age: 73 Year
  Sex: Male

DRUGS (1)
  1. COUMADIN [Suspect]
     Active Substance: WARFARIN SODIUM
     Indication: CARDIAC VALVE PROSTHESIS USER
     Dosage: 80 MG, QWK
     Route: 048
     Dates: start: 19980401, end: 20150924

REACTIONS (1)
  - Vein disorder [Unknown]

NARRATIVE: CASE EVENT DATE: 20150911
